FAERS Safety Report 7220592-7 (Version None)
Quarter: 2011Q1

REPORT INFORMATION
  Report Type: 
  Country: None (occurrence: None)
  Receive Date: 20110111
  Receipt Date: 20110107
  Transmission Date: 20110831
  Serious: Yes (Other)
  Sender: FDA-Public Use
  Company Number: US-PFIZER INC-2011004974

PATIENT
  Sex: Female
  Weight: 66 kg

DRUGS (5)
  1. VITAMIN D [Concomitant]
     Indication: VITAMIN D DEFICIENCY
     Dosage: UNK
  2. PREMPRO [Suspect]
     Indication: MENOPAUSAL SYMPTOMS
     Dosage: 0.3/1.5 MG, DAILY
     Route: 048
     Dates: start: 20100921
  3. COENZYME Q10 [Concomitant]
     Indication: FIBROMYALGIA
     Dosage: UNK
  4. FISH OIL [Concomitant]
     Dosage: UNK
  5. TYLENOL [Concomitant]
     Indication: PAIN
     Dosage: UNK

REACTIONS (8)
  - GASTRITIS [None]
  - ODYNOPHAGIA [None]
  - DYSPEPSIA [None]
  - VOCAL CORD PARALYSIS [None]
  - CHEST PAIN [None]
  - OESOPHAGEAL PAIN [None]
  - DYSPNOEA [None]
  - OESOPHAGITIS [None]
